FAERS Safety Report 12694652 (Version 1)
Quarter: 2016Q3

REPORT INFORMATION
  Report Type: Spontaneous
  Country: US (occurrence: US)
  Receive Date: 20160829
  Receipt Date: 20160829
  Transmission Date: 20161109
  Serious: No
  Sender: FDA-Public Use
  Company Number: US-BEH-2016072916

PATIENT
  Age: 75 Year
  Sex: Female
  Weight: 86.4 kg

DRUGS (16)
  1. HEPARIN [Concomitant]
     Active Substance: HEPARIN SODIUM
  2. NORCO [Concomitant]
     Active Substance: ACETAMINOPHEN\HYDROCODONE BITARTRATE
  3. STERILE WATER [Concomitant]
     Active Substance: WATER
  4. TOPROL XL [Concomitant]
     Active Substance: METOPROLOL SUCCINATE
  5. RANITIDINE. [Concomitant]
     Active Substance: RANITIDINE
  6. TEGRETOL [Concomitant]
     Active Substance: CARBAMAZEPINE
  7. BERINERT [Suspect]
     Active Substance: HUMAN C1-ESTERASE INHIBITOR
     Indication: HEREDITARY ANGIOEDEMA
     Dosage: 1000 IU, PRN
     Route: 042
  8. BERINERT [Suspect]
     Active Substance: HUMAN C1-ESTERASE INHIBITOR
     Dosage: UNK
     Route: 042
     Dates: start: 20140109
  9. EPIPEN [Concomitant]
     Active Substance: EPINEPHRINE
  10. DIPHENHYDRAMINE. [Concomitant]
     Active Substance: DIPHENHYDRAMINE
  11. TENORMIN [Concomitant]
     Active Substance: ATENOLOL
  12. ZOCOR [Concomitant]
     Active Substance: SIMVASTATIN
  13. CELEBREX [Concomitant]
     Active Substance: CELECOXIB
  14. IMDUR [Concomitant]
     Active Substance: ISOSORBIDE MONONITRATE
  15. SODIUM CHLORIDE. [Concomitant]
     Active Substance: SODIUM CHLORIDE
  16. DANAZOL. [Concomitant]
     Active Substance: DANAZOL

REACTIONS (2)
  - Fall [Unknown]
  - Joint injury [Unknown]

NARRATIVE: CASE EVENT DATE: 20160819
